FAERS Safety Report 9974285 (Version 1)
Quarter: 2014Q1

REPORT INFORMATION
  Report Type: Report from Study
  Country: US (occurrence: US)
  Receive Date: 20140306
  Receipt Date: 20140306
  Transmission Date: 20141002
  Serious: No
  Sender: FDA-Public Use
  Company Number: US-ABBVIE-13P-163-1156871-00

PATIENT
  Age: 39 Year
  Sex: Female

DRUGS (5)
  1. HUMIRA [Suspect]
     Indication: CROHN^S DISEASE
     Dates: start: 20130830, end: 20130830
  2. HUMIRA [Suspect]
     Dates: start: 20130906, end: 20130906
  3. HUMIRA [Suspect]
     Dates: start: 20130913, end: 20130913
  4. HUMIRA [Suspect]
     Dates: start: 20130927, end: 20130927
  5. HUMIRA [Suspect]

REACTIONS (4)
  - Inappropriate schedule of drug administration [Unknown]
  - Incorrect dose administered [Unknown]
  - Inappropriate schedule of drug administration [Unknown]
  - Incorrect dose administered [Unknown]
